FAERS Safety Report 7621085-5 (Version None)
Quarter: 2011Q3

REPORT INFORMATION
  Report Type: 
  Country: None (occurrence: None)
  Receive Date: 20110719
  Receipt Date: 20110315
  Transmission Date: 20111222
  Serious: No
  Sender: FDA-Public Use
  Company Number: US-KINGPHARMUSA00001-K201100326

PATIENT
  Age: 66 Year
  Sex: Female

DRUGS (5)
  1. ASCORBIC ACID [Concomitant]
  2. CALCIUM CARBONATE [Concomitant]
  3. VITAMIN D [Concomitant]
  4. LEVOXYL [Suspect]
     Indication: HYPOTHYROIDISM
     Dosage: 88 MCG, QAM
     Route: 048
     Dates: start: 20010101
  5. MULTI-VITAMIN [Concomitant]

REACTIONS (8)
  - ABDOMINAL DISTENSION [None]
  - LIP SWELLING [None]
  - FOOD ALLERGY [None]
  - PSYCHOMOTOR HYPERACTIVITY [None]
  - OEDEMA PERIPHERAL [None]
  - ACNE PUSTULAR [None]
  - DRUG EFFECT DECREASED [None]
  - PHARYNGEAL OEDEMA [None]
